FAERS Safety Report 12836085 (Version 4)
Quarter: 2016Q4

REPORT INFORMATION
  Report Type: Report from Study
  Country: US (occurrence: US)
  Receive Date: 20161011
  Receipt Date: 20161121
  Transmission Date: 20170207
  Serious: Yes (Other)
  Sender: FDA-Public Use
  Company Number: US-BAYER-2016-193690

PATIENT
  Age: 58 Year
  Sex: Male

DRUGS (2)
  1. STIVARGA [Suspect]
     Active Substance: REGORAFENIB
     Indication: COLORECTAL CANCER
     Dosage: 40 MG, TID WITH REGULAR MEAL
     Route: 048
     Dates: start: 20160927, end: 201610
  2. STIVARGA [Suspect]
     Active Substance: REGORAFENIB
     Indication: COLORECTAL CANCER
     Dosage: 120 MG DAILY DOSE
     Route: 048
     Dates: end: 20161110

REACTIONS (8)
  - Palmar-plantar erythrodysaesthesia syndrome [None]
  - Erythema [None]
  - Skin exfoliation [None]
  - Visual impairment [None]
  - Pain in extremity [None]
  - Stomatitis [None]
  - Gait disturbance [Recovering/Resolving]
  - Product use issue [None]

NARRATIVE: CASE EVENT DATE: 201609
